FAERS Safety Report 4639740-8 (Version None)
Quarter: 2005Q1

REPORT INFORMATION
  Report Type: 
  Country: None (occurrence: None)
  Receive Date: 20050328
  Receipt Date: 20050119
  Transmission Date: 20050727
  Serious: No
  Sender: FDA-Public Use
  Company Number: USA050189150

PATIENT
  Age: 26 Year
  Sex: Male

DRUGS (2)
  1. STRATTERA [Suspect]
     Dosage: 120 MG DAY
     Dates: start: 20041201
  2. WELLBUTRIN [Concomitant]

REACTIONS (2)
  - PRESCRIBED OVERDOSE [None]
  - SEXUAL DYSFUNCTION [None]
